FAERS Safety Report 16305307 (Version 2)
Quarter: 2019Q2

REPORT INFORMATION
  Report Type: Spontaneous
  Country: US (occurrence: US)
  Receive Date: 20190513
  Receipt Date: 20190523
  Transmission Date: 20190711
  Serious: Yes (Death)
  Sender: FDA-Public Use
  Company Number: US-VIFOR (INTERNATIONAL) INC.-VIT-2019-04284

PATIENT
  Sex: Male
  Weight: 118.04 kg

DRUGS (10)
  1. COREG [Concomitant]
     Active Substance: CARVEDILOL
     Route: 048
  2. ASPIRIN. [Concomitant]
     Active Substance: ASPIRIN
     Route: 048
  3. HYDRALAZINE HYDROCHLORIDE. [Concomitant]
     Active Substance: HYDRALAZINE HYDROCHLORIDE
     Route: 048
  4. VELTASSA [Suspect]
     Active Substance: PATIROMER
     Indication: HYPERKALAEMIA
     Route: 048
     Dates: start: 20190419
  5. ELIQUIS [Concomitant]
     Active Substance: APIXABAN
     Route: 048
  6. ATORVASTATIN CALCIUM. [Concomitant]
     Active Substance: ATORVASTATIN CALCIUM
     Route: 048
  7. ISOSORBIDE MONONITRATE. [Concomitant]
     Active Substance: ISOSORBIDE MONONITRATE
     Route: 048
  8. LEVOTHYROXINE SODIUM. [Concomitant]
     Active Substance: LEVOTHYROXINE SODIUM
     Route: 048
  9. LASIX [Concomitant]
     Active Substance: FUROSEMIDE
     Route: 048
  10. LANTUS SOLOSTAR [Concomitant]
     Active Substance: INSULIN GLARGINE
     Dosage: 100 UNITS/ML.
     Route: 058

REACTIONS (1)
  - Death [Fatal]

NARRATIVE: CASE EVENT DATE: 2019
